FAERS Safety Report 5281268-9 (Version None)
Quarter: 2007Q1

REPORT INFORMATION
  Report Type: 
  Country: None (occurrence: None)
  Receive Date: 20061218
  Receipt Date: 20060221
  Transmission Date: 20070707
  Serious: Yes (Other)
  Sender: FDA-Public Use
  Company Number: US200602004243

PATIENT
  Age: 64 Year
  Sex: Female

DRUGS (1)
  1. HUMULIN L [Suspect]
     Dosage: 25 U, EACH MORNING,

REACTIONS (3)
  - BLOOD GLUCOSE DECREASED [None]
  - DECREASED APPETITE [None]
  - LOSS OF CONSCIOUSNESS [None]
